FAERS Safety Report 5131135-6 (Version None)
Quarter: 2006Q3

REPORT INFORMATION
  Report Type: 
  Country: None (occurrence: None)
  Receive Date: 20060830
  Receipt Date: 20060123
  Transmission Date: 20061208
  Serious: Yes (Hospitalization)
  Sender: FDA-Public Use
  Company Number: CIP06000163

PATIENT
  Age: 35 Year
  Sex: Male
  Weight: 76.2 kg

DRUGS (1)
  1. ASACOL [Suspect]
     Indication: PROCTITIS ULCERATIVE
     Dosage: 800 MG THREE TIMES DAILY, ORAL
     Route: 048
     Dates: start: 20041001, end: 20051201

REACTIONS (1)
  - PANCREATITIS [None]
